FAERS Safety Report 6078319-0 (Version None)
Quarter: 2009Q1

REPORT INFORMATION
  Report Type: 
  Country: None (occurrence: None)
  Receive Date: 20090213
  Receipt Date: 20090212
  Transmission Date: 20090719
  Serious: Yes (Disabling, Other)
  Sender: FDA-Public Use
  Company Number: CA-WYE-G02687208

PATIENT
  Sex: Female

DRUGS (13)
  1. TORISEL [Suspect]
     Indication: METASTATIC RENAL CELL CARCINOMA
     Route: 042
     Dates: start: 20080101, end: 20080101
  2. TORISEL [Suspect]
     Dosage: UNKNOWN
     Route: 042
     Dates: start: 20080101
  3. CRESTOR [Concomitant]
     Indication: CORONARY ARTERY DISEASE
     Route: 048
  4. COVERSYL [Concomitant]
     Indication: CARDIAC FAILURE CONGESTIVE
     Route: 048
  5. METOPROLOL TARTRATE [Concomitant]
     Indication: HYPERTENSION
     Route: 048
  6. MAGNESIUM SULFATE [Concomitant]
  7. EFFEXOR XR [Concomitant]
     Indication: DEPRESSION
     Route: 048
  8. OXAZEPAM [Concomitant]
     Indication: SLEEP DISORDER
     Dosage: 15 MG EVERY 1 PRN
     Route: 048
  9. ACETYLSALICYLIC ACID SRT [Concomitant]
     Indication: CORONARY ARTERY DISEASE
     Route: 048
  10. NITROGLYCERIN [Concomitant]
  11. VITAMINS [Concomitant]
  12. SYNTHROID [Concomitant]
     Indication: HYPOTHYROIDISM
     Route: 048
  13. NEXIUM [Concomitant]
     Route: 048

REACTIONS (5)
  - BALANCE DISORDER [None]
  - HYPERTRIGLYCERIDAEMIA [None]
  - NERVOUS SYSTEM DISORDER [None]
  - RASH [None]
  - TREMOR [None]
